FAERS Safety Report 5135003-5 (Version None)
Quarter: 2006Q4

REPORT INFORMATION
  Report Type: 
  Country: None (occurrence: None)
  Receive Date: 20060831
  Receipt Date: 20060606
  Transmission Date: 20070319
  Serious: No
  Sender: FDA-Public Use
  Company Number: 2006-BP-01895BP

PATIENT
  Age: 52 Year
  Sex: Male

DRUGS (2)
  1. SPIRIVA [Suspect]
     Dosage: 18 MCG (18 MCG,1 IN 1 D),IH
     Route: 055
     Dates: start: 20051001
  2. SPIRIVA [Suspect]

REACTIONS (2)
  - AGEUSIA [None]
  - PARAESTHESIA ORAL [None]
